FAERS Safety Report 6269523-7 (Version None)
Quarter: 2009Q3

REPORT INFORMATION
  Report Type: 
  Country: None (occurrence: None)
  Receive Date: 20090715
  Receipt Date: 20090212
  Transmission Date: 20100115
  Serious: No
  Sender: FDA-Public Use
  Company Number: US-TYCO HEALTHCARE/MALLINCKRODT-T200900376

PATIENT
  Sex: Male
  Weight: 86.168 kg

DRUGS (1)
  1. OXYCODONE HCL [Suspect]
     Indication: PAIN
     Dosage: 30 MG, TID

REACTIONS (3)
  - BLOOD PRESSURE INCREASED [None]
  - DRUG INEFFECTIVE [None]
  - FEELING ABNORMAL [None]
